FAERS Safety Report 7596275-0 (Version None)
Quarter: 2011Q3

REPORT INFORMATION
  Report Type: 
  Country: None (occurrence: None)
  Receive Date: 20110707
  Receipt Date: 20110629
  Transmission Date: 20111222
  Serious: Yes (Hospitalization)
  Sender: FDA-Public Use
  Company Number: US-US-EMD SERONO, INC.-7068229

PATIENT
  Sex: Female

DRUGS (6)
  1. REBIF [Suspect]
     Indication: MULTIPLE SCLEROSIS
     Route: 058
     Dates: start: 20100505
  2. UNSPECIFIED HIGH BLOOD PRESSURE MEDICATION [Concomitant]
     Indication: HYPERTENSION
  3. UNSPECIFIED MULTIPLE SCLEROSIS MEDICATION [Concomitant]
     Indication: MULTIPLE SCLEROSIS
     Dates: end: 20110101
  4. UNSPECIFIED MEDICATION [Concomitant]
     Indication: MUSCLE RELAXANT THERAPY
     Dates: end: 20110101
  5. UNSPECIFIED MEDICATION [Concomitant]
     Indication: PAIN
     Dates: end: 20110101
  6. UNSPECIFIED MEDICATION [Concomitant]
     Indication: ANXIETY
     Dates: end: 20110101

REACTIONS (3)
  - OVERDOSE [None]
  - MULTIPLE SCLEROSIS RELAPSE [None]
  - MYOCARDIAL INFARCTION [None]
